FAERS Safety Report 11842080 (Version 1)
Quarter: 2015Q4

REPORT INFORMATION
  Report Type: Spontaneous
  Country: US (occurrence: US)
  Receive Date: 20151216
  Receipt Date: 20151216
  Transmission Date: 20160305
  Serious: No
  Sender: FDA-Public Use
  Company Number: US-BAUSCH-BL-2015-027200

PATIENT
  Age: 69 Year
  Sex: Male
  Weight: 84.9 kg

DRUGS (2)
  1. JUBLIA [Suspect]
     Active Substance: EFINACONAZOLE
     Indication: FUNGAL INFECTION
     Route: 061
     Dates: start: 2015
  2. LIPITOR [Concomitant]
     Active Substance: ATORVASTATIN CALCIUM
     Indication: HYPERLIPIDAEMIA

REACTIONS (1)
  - Skin discolouration [Not Recovered/Not Resolved]

NARRATIVE: CASE EVENT DATE: 201510
